FAERS Safety Report 9436191 (Version 2)
Quarter: 2013Q3

REPORT INFORMATION
  Report Type: Spontaneous
  Country: CA (occurrence: CA)
  Receive Date: 20130801
  Receipt Date: 20130918
  Transmission Date: 20140515
  Serious: Yes (Death)
  Sender: FDA-Public Use
  Company Number: CA-RB-056676-13

PATIENT
  Age: 34 Year
  Sex: Male

DRUGS (3)
  1. SUBOXONE TABLET [Suspect]
     Route: 048
     Dates: start: 20130705, end: 20130714
  2. SUBOXONE TABLET [Suspect]
     Indication: DRUG DEPENDENCE
     Route: 048
     Dates: start: 20130715, end: 20130717
  3. SUBOXONE TABLET [Suspect]
     Route: 048
     Dates: start: 20130718, end: 20130718

REACTIONS (2)
  - Incorrect route of drug administration [Recovered/Resolved]
  - Death [Fatal]
